FAERS Safety Report 18683559 (Version 1)
Quarter: 2020Q4

REPORT INFORMATION
  Report Type: Spontaneous
  Country: US (occurrence: US)
  Receive Date: 20201230
  Receipt Date: 20201230
  Transmission Date: 20210114
  Serious: Yes (Life-Threatening, Disabling)
  Sender: FDA-Public Use
  Company Number: None

PATIENT
  Age: 57 Year
  Sex: Female

DRUGS (2)
  1. ZYPREXA [Suspect]
     Active Substance: OLANZAPINE
     Dates: start: 20201229, end: 20201229
  2. KLONIPIN [Concomitant]
     Active Substance: CLONAZEPAM

REACTIONS (9)
  - Hypertension [None]
  - Vertigo [None]
  - Palpitations [None]
  - Tremor [None]
  - Epistaxis [None]
  - Diarrhoea [None]
  - Tachycardia [None]
  - Myoclonic epilepsy [None]
  - Vomiting [None]

NARRATIVE: CASE EVENT DATE: 20201229
